FAERS Safety Report 7956509-7 (Version None)
Quarter: 2011Q4

REPORT INFORMATION
  Report Type: 
  Country: None (occurrence: None)
  Receive Date: 20111205
  Receipt Date: 20111128
  Transmission Date: 20120403
  Serious: No
  Sender: FDA-Public Use
  Company Number: US-PFIZER INC-2011271461

PATIENT
  Sex: Female

DRUGS (1)
  1. NEOSPORIN [Suspect]
     Indication: ECZEMA EYELIDS
     Dosage: UNK
     Route: 061
     Dates: start: 20040701, end: 20110704

REACTIONS (2)
  - EYELID OEDEMA [None]
  - HYPERSENSITIVITY [None]
